FAERS Safety Report 12683205 (Version 6)
Quarter: 2017Q3

REPORT INFORMATION
  Report Type: Report from Study
  Country: CA (occurrence: CA)
  Receive Date: 20160825
  Receipt Date: 20170804
  Transmission Date: 20171127
  Serious: Yes (Hospitalization, Disabling, Other)
  Sender: FDA-Public Use
  Company Number: PHHY2016CA115848

PATIENT
  Age: 74 Year
  Sex: Female

DRUGS (13)
  1. FUROSEMIDE. [Concomitant]
     Active Substance: FUROSEMIDE
     Indication: PRODUCT USED FOR UNKNOWN INDICATION
     Dosage: 1 QAM, QD (30 TABLETS)
     Route: 048
     Dates: start: 20140108
  2. ACTEMRA [Concomitant]
     Active Substance: TOCILIZUMAB
     Indication: PRODUCT USED FOR UNKNOWN INDICATION
     Dosage: 1 DF, QMO (400 MG /20 ML VIAL) 3 REPEATS
     Route: 042
     Dates: start: 20160929
  3. HYDROCORTISONE. [Concomitant]
     Active Substance: HYDROCORTISONE
     Indication: PRODUCT USED FOR UNKNOWN INDICATION
     Dosage: 1 U, Q12H (30 G)
     Route: 065
     Dates: start: 20151020
  4. VENTOLIN HFA [Concomitant]
     Active Substance: ALBUTEROL SULFATE
     Indication: PRODUCT USED FOR UNKNOWN INDICATION
     Dosage: (2 HFA AER AD Q4-6 HRS) PRN
     Route: 055
     Dates: start: 20131006
  5. FOLIC ACID. [Concomitant]
     Active Substance: FOLIC ACID
     Indication: PRODUCT USED FOR UNKNOWN INDICATION
     Dosage: 1 DF, QD (100 TABLETS)
     Route: 048
     Dates: start: 20100213
  6. ACLASTA [Suspect]
     Active Substance: ZOLEDRONIC ACID
     Indication: OSTEOPOROSIS
     Dosage: 1 DF (5 MG/100 ML), Q12MO
     Route: 042
     Dates: start: 20160811
  7. TYLENOL WITH CODEINE [Concomitant]
     Active Substance: ACETAMINOPHEN\CODEINE PHOSPHATE
     Indication: PRODUCT USED FOR UNKNOWN INDICATION
     Dosage: 1 DF, Q4H PRN (120 TABLET)
     Route: 048
     Dates: start: 20090812
  8. PREMARIN VAGINAL [Concomitant]
     Active Substance: ESTROGENS, CONJUGATED
     Indication: PRODUCT USED FOR UNKNOWN INDICATION
     Dosage: 0.5 G, QHS (2 WEEKS THEN 2X WEEKLY, 3 PACKS OF 14 GRAM; 3 REPEATS)
     Route: 067
  9. CIPROFLOXACIN. [Suspect]
     Active Substance: CIPROFLOXACIN
     Indication: PRODUCT USED FOR UNKNOWN INDICATION
     Route: 065
  10. PREDNISONE. [Concomitant]
     Active Substance: PREDNISONE
     Indication: PRODUCT USED FOR UNKNOWN INDICATION
     Dosage: 2 DF, QD 200 TABLET; 3 REPEATS
     Route: 048
     Dates: start: 20100213
  11. BIAXIN [Concomitant]
     Active Substance: CLARITHROMYCIN
     Indication: PRODUCT USED FOR UNKNOWN INDICATION
     Dosage: 1 DF, BID (20 TABLETS)
     Route: 065
     Dates: start: 20160929
  12. ACLASTA [Suspect]
     Active Substance: ZOLEDRONIC ACID
     Indication: RHEUMATOID ARTHRITIS
     Dosage: 1 DF (5 MG/100 ML), Q12MO
     Route: 042
     Dates: start: 20170511
  13. APO-PREDNISONE [Concomitant]
     Active Substance: PREDNISONE
     Indication: PRODUCT USED FOR UNKNOWN INDICATION
     Dosage: 3 DF, QD (300 TABLET; 3 REPEATS)
     Route: 048
     Dates: start: 20130423

REACTIONS (16)
  - Contusion [Unknown]
  - Product use in unapproved indication [Unknown]
  - Mobility decreased [Recovering/Resolving]
  - Peripheral swelling [Recovered/Resolved]
  - Pruritus [Unknown]
  - Pain [Unknown]
  - Arthralgia [Recovered/Resolved]
  - Swelling [Recovering/Resolving]
  - Hypersensitivity [Recovered/Resolved]
  - Fall [Recovering/Resolving]
  - Joint swelling [Recovered/Resolved]
  - Pain in extremity [Recovering/Resolving]
  - Inappropriate schedule of drug administration [Unknown]
  - Urticaria [Unknown]
  - Rheumatoid arthritis [Unknown]
  - Rash [Unknown]

NARRATIVE: CASE EVENT DATE: 20160811
